FAERS Safety Report 4487554-4 (Version None)
Quarter: 2004Q4

REPORT INFORMATION
  Report Type: 
  Country: None (occurrence: None)
  Receive Date: 20041028
  Receipt Date: 20041015
  Transmission Date: 20050328
  Serious: Yes (Death, Hospitalization)
  Sender: FDA-Public Use
  Company Number: GB-JNJFOC-20041004970

PATIENT
  Sex: Male

DRUGS (9)
  1. REMICADE [Suspect]
     Indication: RHEUMATOID ARTHRITIS
     Route: 042
  2. SULFASALAZINE [Concomitant]
  3. PREDNISOLONE [Concomitant]
  4. METHOTREXATE [Concomitant]
     Dates: end: 20040507
  5. DIDRONEL [Concomitant]
  6. LOSEC [Concomitant]
  7. FOLIC ACID [Concomitant]
  8. COLIFOAM [Concomitant]
  9. LEFLUNOMIDE [Concomitant]

REACTIONS (2)
  - BODY TEMPERATURE INCREASED [None]
  - EPISTAXIS [None]
